FAERS Safety Report 4885384-2 (Version None)
Quarter: 2005Q4

REPORT INFORMATION
  Report Type: 
  Country: None (occurrence: None)
  Receive Date: 20051222
  Receipt Date: 20050719
  Transmission Date: 20060501
  Serious: Yes (Other)
  Sender: FDA-Public Use
  Company Number: 200506017

PATIENT
  Sex: Male

DRUGS (1)
  1. ELESTAT [Suspect]
     Indication: HYPERSENSITIVITY
     Dosage: 2 DROP BID EYE
     Dates: start: 20050505

REACTIONS (1)
  - ADVERSE DRUG REACTION [None]
